FAERS Safety Report 7538897-9 (Version None)
Quarter: 2011Q2

REPORT INFORMATION
  Report Type: 
  Country: None (occurrence: None)
  Receive Date: 20110524
  Receipt Date: 20110414
  Transmission Date: 20111010
  Serious: No
  Sender: FDA-Public Use
  Company Number: 031792

PATIENT
  Sex: Male

DRUGS (1)
  1. CIMZIA [Suspect]
     Indication: CROHN'S DISEASE
     Dosage: (STOPPED AFTER 8 DOSES SUBCUTANEOUS)
     Route: 058

REACTIONS (1)
  - DRUG INEFFECTIVE [None]
